FAERS Safety Report 11090562 (Version 2)
Quarter: 2015Q2

REPORT INFORMATION
  Report Type: Report from Study
  Country: BR (occurrence: BR)
  Receive Date: 20150505
  Receipt Date: 20150519
  Transmission Date: 20150821
  Serious: Yes (Hospitalization, Other)
  Sender: FDA-Public Use
  Company Number: PHHY2015BR025891

PATIENT
  Sex: Female
  Weight: 48 kg

DRUGS (4)
  1. EXELON PATCH [Suspect]
     Active Substance: RIVASTIGMINE
     Indication: MEMORY IMPAIRMENT
     Dosage: PATCH 10 (CM2)1 PATCH DAILY
     Route: 062
     Dates: start: 20140226, end: 201504
  2. EXELON PATCH [Suspect]
     Active Substance: RIVASTIGMINE
     Dosage: PATCH 15 (CM2)1 PATCH DAILY
     Route: 062
     Dates: start: 201504, end: 201504
  3. EXELON PATCH [Suspect]
     Active Substance: RIVASTIGMINE
     Indication: DEMENTIA ALZHEIMER^S TYPE
     Dosage: PATCH 5 (CM2)1 PATCH DAILY
     Route: 062
  4. EXODUS//NICOTINE [Concomitant]
     Active Substance: NICOTINE
     Indication: MEMORY IMPAIRMENT
     Dosage: 10 MG, QD
     Route: 048

REACTIONS (12)
  - Stress [Recovered/Resolved]
  - Weight decreased [Recovered/Resolved]
  - Anxiety [Recovered/Resolved]
  - Tremor [Recovered/Resolved]
  - Hypersomnia [Not Recovered/Not Resolved]
  - Weight increased [Not Recovered/Not Resolved]
  - Muscular weakness [Recovered/Resolved]
  - Vomiting [Recovered/Resolved]
  - Gait disturbance [Recovered/Resolved]
  - Nervousness [Recovered/Resolved]
  - Malaise [Recovered/Resolved]
  - Off label use [Unknown]
